FAERS Safety Report 6763539-X (Version None)
Quarter: 2010Q2

REPORT INFORMATION
  Report Type: 
  Country: None (occurrence: None)
  Receive Date: 20100610
  Receipt Date: 20100528
  Transmission Date: 20101027
  Serious: Yes (Disabling, Other)
  Sender: FDA-Public Use
  Company Number: PHHY2010AU31098

PATIENT
  Sex: Male

DRUGS (8)
  1. CLOZARIL [Suspect]
     Dosage: 650 MG, UNK
     Dates: start: 19930107
  2. ALLOPURINOL [Suspect]
     Dosage: 300 MG DAILY
  3. JEZIL [Concomitant]
  4. COVERSYL [Concomitant]
     Indication: BLOOD PRESSURE
  5. VYTORIN [Concomitant]
     Dosage: NOCTE
  6. PERINDOPRIL [Concomitant]
     Dosage: 25MG DAILY
  7. GEMFIBROZIL [Concomitant]
     Dosage: 600 MG DAILY
  8. GLEEVEC [Concomitant]
     Indication: CHRONIC MYELOID LEUKAEMIA
     Dosage: 400 MG DAILY
     Dates: start: 20100505

REACTIONS (6)
  - ACUTE MYOCARDIAL INFARCTION [None]
  - ASPIRATION BONE MARROW [None]
  - CHRONIC MYELOID LEUKAEMIA [None]
  - COLON CANCER [None]
  - FULL BLOOD COUNT ABNORMAL [None]
  - NEUTROPHIL COUNT INCREASED [None]
